FAERS Safety Report 11243842 (Version 1)
Quarter: 2015Q3

REPORT INFORMATION
  Report Type: Report from Study
  Country: FR (occurrence: FR)
  Receive Date: 20150707
  Receipt Date: 20150707
  Transmission Date: 20151125
  Serious: Yes (Hospitalization, Other)
  Sender: FDA-Public Use
  Company Number: FR-UCBSA-8025555

PATIENT
  Age: 24 Year
  Sex: Female
  Weight: 71 kg

DRUGS (48)
  1. SODIUM OXYBATE [Suspect]
     Active Substance: SODIUM OXYBATE
     Dosage: DOSE FREQ.: DAILY
     Route: 048
     Dates: start: 20070808, end: 20070821
  2. SODIUM OXYBATE [Suspect]
     Active Substance: SODIUM OXYBATE
     Dosage: 3 G, ONCE DAILY (QD), NIGHTLY
     Route: 048
     Dates: start: 20091112
  3. SODIUM OXYBATE [Suspect]
     Active Substance: SODIUM OXYBATE
     Dosage: 4.25 G, ONCE DAILY (QD), NIGHTLY
     Route: 048
     Dates: start: 20120208, end: 20120412
  4. SODIUM OXYBATE [Suspect]
     Active Substance: SODIUM OXYBATE
     Dosage: BTEWEEN 2.5 GM ONCE NIGHTLY AND 3 GM ONCE NIGTHLY
     Route: 048
     Dates: start: 2012
  5. PROPOFAN [Concomitant]
     Dates: start: 200811
  6. EFFEXOR LP 75 [Concomitant]
  7. SODIUM OXYBATE [Suspect]
     Active Substance: SODIUM OXYBATE
     Dosage: 3 G+ 1.5 G DOSE FREQ.: DAILY
     Route: 048
     Dates: start: 20080206, end: 20080223
  8. SODIUM OXYBATE [Suspect]
     Active Substance: SODIUM OXYBATE
     Dosage: 3 G, 2X/DAY (BID)
     Route: 048
     Dates: start: 20090507, end: 20090507
  9. SODIUM OXYBATE [Suspect]
     Active Substance: SODIUM OXYBATE
     Dosage: NIGHTLY DOSE FREQ.: DAILY
     Route: 048
     Dates: start: 20090604, end: 20090612
  10. SODIUM OXYBATE [Suspect]
     Active Substance: SODIUM OXYBATE
     Dosage: 3 G, 2X/DAY (BID), NIGHTLY
     Route: 048
     Dates: start: 20090911
  11. SODIUM OXYBATE [Suspect]
     Active Substance: SODIUM OXYBATE
     Dosage: 3.25 G DOSE ALTERNATED WITH 3.50 G DOSE
     Route: 048
     Dates: start: 20130713, end: 20130914
  12. SODIUM OXYBATE [Suspect]
     Active Substance: SODIUM OXYBATE
     Dosage: 3.25 G DOSE ALTERNATED WITH 3.5 G ; NIGHTLY
     Route: 048
     Dates: start: 20130917, end: 20131011
  13. LEVOTHYROX [Concomitant]
     Active Substance: LEVOTHYROXINE
     Route: 048
  14. STILNOX [Concomitant]
     Active Substance: ZOLPIDEM TARTRATE
     Indication: PRODUCT USED FOR UNKNOWN INDICATION
     Dosage: UNK
  15. SODIUM OXYBATE [Suspect]
     Active Substance: SODIUM OXYBATE
     Indication: NARCOLEPSY
     Dosage: DOSE FREQ.: DAILY
     Route: 048
     Dates: start: 20070622, end: 20070705
  16. SODIUM OXYBATE [Suspect]
     Active Substance: SODIUM OXYBATE
     Indication: HYPERSOMNIA
     Dosage: DOSE FREQ.: DAILY
     Route: 048
     Dates: start: 20070706, end: 20070720
  17. SODIUM OXYBATE [Suspect]
     Active Substance: SODIUM OXYBATE
     Dosage: 3 G + 1.5 G DOSE FREQ.: DAILY
     Route: 048
     Dates: start: 20071008, end: 20071008
  18. SODIUM OXYBATE [Suspect]
     Active Substance: SODIUM OXYBATE
     Dosage: DOSE FREQ.: DAILY
     Route: 048
     Dates: start: 20071101, end: 20080205
  19. SODIUM OXYBATE [Suspect]
     Active Substance: SODIUM OXYBATE
     Dosage: 3 G, ONCE DAILY (QD)
     Route: 048
     Dates: start: 20081118, end: 20090506
  20. SODIUM OXYBATE [Suspect]
     Active Substance: SODIUM OXYBATE
     Dosage: 3 G, ONCE DAILY (QD)
     Route: 048
     Dates: start: 20090508, end: 20090519
  21. SODIUM OXYBATE [Suspect]
     Active Substance: SODIUM OXYBATE
     Dosage: 3 G, 2X/DAY (BID)
     Route: 048
     Dates: start: 20090520, end: 20090520
  22. SODIUM OXYBATE [Suspect]
     Active Substance: SODIUM OXYBATE
     Dosage: DOSE FREQ.: DAILY
     Route: 048
     Dates: start: 20090614, end: 200907
  23. SODIUM OXYBATE [Suspect]
     Active Substance: SODIUM OXYBATE
     Dosage: 3.25 G, 2X/DAY (BID), NIGHTLY
     Route: 048
     Dates: start: 20130915, end: 20130916
  24. SODIUM OXYBATE [Suspect]
     Active Substance: SODIUM OXYBATE
     Dosage: 3.5 G, ONCE DAILY (QD), NIGHTLY
     Route: 048
     Dates: start: 20131014
  25. SODIUM OXYBATE [Suspect]
     Active Substance: SODIUM OXYBATE
     Dosage: DOSE FREQ.: DAILY
     Route: 048
     Dates: start: 20070920, end: 20071001
  26. SODIUM OXYBATE [Suspect]
     Active Substance: SODIUM OXYBATE
     Dosage: DOSE FREQ.: DAILY
     Route: 048
     Dates: start: 20071009, end: 20071030
  27. SODIUM OXYBATE [Suspect]
     Active Substance: SODIUM OXYBATE
     Dosage: 3 G, ONCE DAILY (QD)
     Route: 048
     Dates: start: 20080224
  28. SODIUM OXYBATE [Suspect]
     Active Substance: SODIUM OXYBATE
     Dosage: DAILY DOSE FREQ.: DAILY
     Route: 048
     Dates: start: 20090521, end: 20090525
  29. SODIUM OXYBATE [Suspect]
     Active Substance: SODIUM OXYBATE
     Dosage: 4 G, ONCE DAILY (QD), NIGHTLY
     Route: 048
     Dates: start: 20120202, end: 20120207
  30. MODIODAL [Concomitant]
     Active Substance: MODAFINIL
     Indication: NARCOLEPSY
     Route: 048
  31. SODIUM OXYBATE [Suspect]
     Active Substance: SODIUM OXYBATE
     Dosage: DOSE FREQ.: DAILY
     Route: 048
     Dates: start: 20070721, end: 20070807
  32. SODIUM OXYBATE [Suspect]
     Active Substance: SODIUM OXYBATE
     Dosage: DOSE FREQ.: DAILY
     Route: 048
     Dates: start: 20070822, end: 20070905
  33. SODIUM OXYBATE [Suspect]
     Active Substance: SODIUM OXYBATE
     Dosage: 3 G, 2X/DAY (BID)
     Route: 048
     Dates: start: 20090526, end: 20090529
  34. SODIUM OXYBATE [Suspect]
     Active Substance: SODIUM OXYBATE
     Dosage: NIGHTLY DOSE FREQ.: DAILY
     Route: 048
     Dates: start: 20090530, end: 20090531
  35. MODIODAL [Concomitant]
     Active Substance: MODAFINIL
     Indication: HYPERSOMNIA
  36. DIANE (CYPROTERONE ACETATE\ETHINYL ESTRADIOL) [Concomitant]
     Active Substance: CYPROTERONE ACETATE\ETHINYL ESTRADIOL
     Indication: CONTRACEPTION
     Route: 048
  37. LYSANXIA [Concomitant]
     Active Substance: PRAZEPAM
     Dates: start: 200811
  38. ZYPREXA 5 MG [Concomitant]
  39. LUTENYL [Concomitant]
     Active Substance: NOMEGESTROL ACETATE
  40. SODIUM OXYBATE [Suspect]
     Active Substance: SODIUM OXYBATE
     Dosage: DOSE FREQ.: DAILY
     Route: 048
     Dates: start: 20070906, end: 20070919
  41. SODIUM OXYBATE [Suspect]
     Active Substance: SODIUM OXYBATE
     Dosage: 3 G, 2X/DAY (BID), NIGHTLY
     Route: 048
     Dates: start: 20090613, end: 20090613
  42. SODIUM OXYBATE [Suspect]
     Active Substance: SODIUM OXYBATE
     Dosage: 1.5 G, 2X/DAY (BID)
     Route: 048
     Dates: start: 20090815
  43. SODIUM OXYBATE [Suspect]
     Active Substance: SODIUM OXYBATE
     Dosage: 3.75 G, ONCE DAILY (QD), NIGHTLY
     Route: 048
     Dates: start: 20120427, end: 20120510
  44. DEROXAT [Concomitant]
     Active Substance: PAROXETINE HYDROCHLORIDE
     Indication: DEPRESSION
     Route: 048
  45. TRANSIPEG [Concomitant]
     Active Substance: POLYETHYLENE GLYCOL 3350
     Indication: PRODUCT USED FOR UNKNOWN INDICATION
     Dosage: UNK
  46. SODIUM OXYBATE [Suspect]
     Active Substance: SODIUM OXYBATE
     Dosage: DOSE FREQ.: DAILY
     Route: 048
     Dates: start: 20071002, end: 20071007
  47. SODIUM OXYBATE [Suspect]
     Active Substance: SODIUM OXYBATE
     Dosage: 3 G, 2X/DAY (BID), NIGHTLY
     Route: 048
     Dates: start: 20090601, end: 20090603
  48. SODIUM OXYBATE [Suspect]
     Active Substance: SODIUM OXYBATE
     Dosage: 4 G, ONCE DAILY (QD), NIGHTLY
     Route: 048
     Dates: start: 20120413, end: 20120426

REACTIONS (50)
  - Depression [Unknown]
  - Sedation [Not Recovered/Not Resolved]
  - Abdominal pain [Not Recovered/Not Resolved]
  - Nausea [Not Recovered/Not Resolved]
  - Incoherent [Not Recovered/Not Resolved]
  - Ear pain [Not Recovered/Not Resolved]
  - Hyperhidrosis [Not Recovered/Not Resolved]
  - Nasopharyngitis [Unknown]
  - Somnolence [Unknown]
  - Drug tolerance [Not Recovered/Not Resolved]
  - Insomnia [Unknown]
  - Vomiting [Unknown]
  - Crying [Unknown]
  - Disorientation [Not Recovered/Not Resolved]
  - Agitation [Not Recovered/Not Resolved]
  - Nightmare [Not Recovered/Not Resolved]
  - Alopecia [Not Recovered/Not Resolved]
  - Middle insomnia [Not Recovered/Not Resolved]
  - Accidental overdose [Unknown]
  - Initial insomnia [Not Recovered/Not Resolved]
  - Expired product administered [Unknown]
  - Hypersomnia [Unknown]
  - Anxiety [Unknown]
  - Dysgeusia [Not Recovered/Not Resolved]
  - Constipation [Not Recovered/Not Resolved]
  - Vision blurred [Not Recovered/Not Resolved]
  - Withdrawal syndrome [Not Recovered/Not Resolved]
  - Myoclonus [Not Recovered/Not Resolved]
  - Dyskinesia [Not Recovered/Not Resolved]
  - Hot flush [Not Recovered/Not Resolved]
  - Fatigue [Unknown]
  - Depressed mood [Unknown]
  - Nocturia [Unknown]
  - Off label use [Unknown]
  - Pruritus generalised [Not Recovered/Not Resolved]
  - Acne [Not Recovered/Not Resolved]
  - Diarrhoea [Not Recovered/Not Resolved]
  - Irritability [Not Recovered/Not Resolved]
  - Gastroenteritis [Unknown]
  - Fall [Unknown]
  - Memory impairment [Not Recovered/Not Resolved]
  - Poor quality sleep [Unknown]
  - Confusional arousal [Unknown]
  - Impatience [Not Recovered/Not Resolved]
  - Dizziness [Not Recovered/Not Resolved]
  - Headache [Unknown]
  - Balance disorder [Not Recovered/Not Resolved]
  - Eructation [Not Recovered/Not Resolved]
  - Pelvic pain [Not Recovered/Not Resolved]
  - Migraine [Unknown]

NARRATIVE: CASE EVENT DATE: 20070622
